FAERS Safety Report 10379029 (Version 2)
Quarter: 2014Q4

REPORT INFORMATION
  Report Type: Spontaneous
  Country: US (occurrence: US)
  Receive Date: 20140812
  Receipt Date: 20141010
  Transmission Date: 20150528
  Serious: Yes (Other)
  Sender: FDA-Public Use
  Company Number: US-LUNDBECK-DKLU1102498

PATIENT
  Sex: Female

DRUGS (5)
  1. ONFI [Suspect]
     Active Substance: CLOBAZAM
     Route: 048
  2. ONFI [Suspect]
     Active Substance: CLOBAZAM
     Route: 048
  3. ONFI [Suspect]
     Active Substance: CLOBAZAM
     Indication: INFANTILE SPASMS
     Route: 048
     Dates: start: 201105
  4. ONFI [Suspect]
     Active Substance: CLOBAZAM
     Indication: EPILEPSY
     Route: 048
     Dates: start: 201402
  5. ONFI [Suspect]
     Active Substance: CLOBAZAM
     Route: 048

REACTIONS (1)
  - Seizure [Recovering/Resolving]
